FAERS Safety Report 10597751 (Version 8)
Quarter: 2016Q2

REPORT INFORMATION
  Report Type: Report from Study
  Country: JP (occurrence: JP)
  Receive Date: 20141121
  Receipt Date: 20160603
  Transmission Date: 20160815
  Serious: Yes (Life-Threatening, Hospitalization, Other)
  Sender: FDA-Public Use
  Company Number: JP-INCYTE CORPORATION-2014IN003281

PATIENT
  Age: 71 Year
  Sex: Male

DRUGS (2)
  1. NAIXAN [Concomitant]
     Active Substance: NAPROXEN SODIUM
     Indication: MYELOFIBROSIS
     Dosage: 300 UNK, UNK
     Route: 048
     Dates: start: 20130730
  2. JAKAFI [Suspect]
     Active Substance: RUXOLITINIB
     Indication: PRIMARY MYELOFIBROSIS
     Dosage: 10 MG, QD (5 MG, BID)
     Route: 048
     Dates: start: 20140929, end: 20141105

REACTIONS (6)
  - Anaemia [Recovered/Resolved]
  - Computerised tomogram thorax abnormal [Not Recovered/Not Resolved]
  - Organising pneumonia [Recovered/Resolved]
  - Lung infection [Not Recovered/Not Resolved]
  - Mucormycosis [Unknown]
  - Pyrexia [Not Recovered/Not Resolved]

NARRATIVE: CASE EVENT DATE: 20141020
